FAERS Safety Report 6085780-4 (Version None)
Quarter: 2009Q1

REPORT INFORMATION
  Report Type: 
  Country: None (occurrence: None)
  Receive Date: 20090217
  Receipt Date: 20090217
  Transmission Date: 20090719
  Serious: Yes (Death, Hospitalization)
  Sender: FDA-Public Use
  Company Number: None

PATIENT
  Age: 9 Year
  Sex: Female
  Weight: 32 kg

DRUGS (1)
  1. HEPARIN [Suspect]
     Indication: LYMPHOMA
     Dates: start: 20061102, end: 20070923

REACTIONS (11)
  - ABDOMINAL DISTENSION [None]
  - BONE MARROW TRANSPLANT [None]
  - CARDIAC ARREST [None]
  - DIZZINESS [None]
  - DYSPNOEA [None]
  - HAEMORRHAGE [None]
  - LYMPHOMA [None]
  - NAUSEA [None]
  - OVERDOSE [None]
  - PULMONARY HAEMORRHAGE [None]
  - VOMITING [None]
